FAERS Safety Report 23092849 (Version 1)
Quarter: 2023Q4

REPORT INFORMATION
  Report Type: Spontaneous
  Country: TR (occurrence: TR)
  Receive Date: 20231021
  Receipt Date: 20231021
  Transmission Date: 20240110
  Serious: Yes (Other)
  Sender: FDA-Public Use
  Company Number: TR-002147023-NVSC2023TR225276

PATIENT
  Age: 61 Year
  Sex: Female

DRUGS (1)
  1. TRILEPTAL [Suspect]
     Active Substance: OXCARBAZEPINE
     Indication: Brain cancer metastatic
     Dosage: UNK
     Route: 065
     Dates: start: 2009

REACTIONS (3)
  - Seizure [Unknown]
  - Product supply issue [Unknown]
  - Off label use [Unknown]
